FAERS Safety Report 17009163 (Version 3)
Quarter: 2022Q2

REPORT INFORMATION
  Report Type: Report from Study
  Country: US (occurrence: None)
  Receive Date: 20191108
  Receipt Date: 20220519
  Transmission Date: 20220720
  Serious: Yes (Other)
  Sender: FDA-Public Use
  Company Number: US-ROCHE-2457673

PATIENT
  Age: 60 Year
  Sex: Female
  Weight: 76 kg

DRUGS (8)
  1. ATEZOLIZUMAB [Suspect]
     Active Substance: ATEZOLIZUMAB
     Indication: Triple negative breast cancer
     Dosage: MOST RECENT DOSE OF ATEZOLIZUMAB PRIOR TO AE ONSET: 08/OCT/2019 (1200 MG)
     Route: 042
     Dates: start: 20181025
  2. PACLITAXEL [Suspect]
     Active Substance: PACLITAXEL
     Indication: Triple negative breast cancer
     Dosage: MOST RECENT DOSE (156 MG) OF PACLITAXEL PRIOR TO AE ONSET: 10/JAN/2019
     Route: 042
     Dates: start: 20181025
  3. DOXORUBICIN [Suspect]
     Active Substance: DOXORUBICIN
     Indication: Triple negative breast cancer
     Dosage: MOST RECENT DOSE OF DOXORUBICIN PRIOR TO AE ONSET: 01/MAR/2019 (118 MG)
     Route: 042
     Dates: start: 20190118
  4. CYCLOPHOSPHAMIDE [Suspect]
     Active Substance: CYCLOPHOSPHAMIDE
     Indication: Triple negative breast cancer
     Dosage: DATE OF MOST RECENT DOSE OF CYCLOPHOSPHAMIDE PRIOR TO AE ONSET: 01/MAR/2019 (1180 MG)
     Route: 042
     Dates: start: 20190118
  5. PEGFILGRASTIM [Suspect]
     Active Substance: PEGFILGRASTIM
     Indication: Triple negative breast cancer
     Dosage: CYCLE 4 VISIT 1
     Route: 058
     Dates: start: 20190121, end: 20190121
  6. PEGFILGRASTIM [Suspect]
     Active Substance: PEGFILGRASTIM
     Dosage: CYCLE 4 VISIT 2
     Route: 058
     Dates: start: 20190204, end: 20190204
  7. PEGFILGRASTIM [Suspect]
     Active Substance: PEGFILGRASTIM
     Dosage: CYCLE 5 VISIT 1
     Route: 058
     Dates: start: 20190218, end: 20190218
  8. PEGFILGRASTIM [Suspect]
     Active Substance: PEGFILGRASTIM
     Dosage: CYCLE 5 VISIT 2
     Route: 058
     Dates: start: 20190304, end: 20190304

REACTIONS (1)
  - Left ventricular dysfunction [Recovered/Resolved]

NARRATIVE: CASE EVENT DATE: 20191023
